FAERS Safety Report 13952058 (Version 1)
Quarter: 2017Q3

REPORT INFORMATION
  Report Type: Spontaneous
  Country: US (occurrence: US)
  Receive Date: 20170910
  Receipt Date: 20170910
  Transmission Date: 20171128
  Serious: Yes (Other)
  Sender: FDA-Public Use
  Company Number: US-ASTRAZENECA-2017SE90954

PATIENT
  Age: 27542 Day
  Sex: Female

DRUGS (6)
  1. FASLODEX [Suspect]
     Active Substance: FULVESTRANT
     Route: 030
     Dates: start: 201212, end: 201401
  2. FEMARA [Suspect]
     Active Substance: LETROZOLE
     Route: 048
     Dates: start: 201202, end: 201212
  3. DOXIL [Concomitant]
     Active Substance: DOXORUBICIN HYDROCHLORIDE
     Dates: start: 201502, end: 201606
  4. IBRANCE [Suspect]
     Active Substance: PALBOCICLIB
     Indication: BREAST CANCER STAGE IV
     Route: 048
     Dates: start: 201704, end: 201706
  5. XELODA [Concomitant]
     Active Substance: CAPECITABINE
  6. DOCETAXEL. [Concomitant]
     Active Substance: DOCETAXEL
     Dates: start: 20160627

REACTIONS (9)
  - Pyrexia [Recovered/Resolved]
  - Paraesthesia [Recovered/Resolved]
  - Pneumonia [Recovered/Resolved]
  - Night sweats [Recovered/Resolved]
  - Malignant neoplasm progression [Unknown]
  - Ear pain [Recovered/Resolved]
  - Cough [Recovered/Resolved]
  - White blood cell count decreased [Recovered/Resolved]
  - Oropharyngeal pain [Recovered/Resolved]

NARRATIVE: CASE EVENT DATE: 20170906
